FAERS Safety Report 7752006-2 (Version None)
Quarter: 2011Q3

REPORT INFORMATION
  Report Type: 
  Country: None (occurrence: None)
  Receive Date: 20110913
  Receipt Date: 20110902
  Transmission Date: 20111222
  Serious: Yes (Hospitalization, Other)
  Sender: FDA-Public Use
  Company Number: 2009JP007452

PATIENT
  Age: 75 Year
  Sex: Male
  Weight: 75 kg

DRUGS (14)
  1. RABEPRAZOLE SODIUM [Concomitant]
  2. ITRACONAZOLE [Concomitant]
  3. METHYLPREDNISOLONE [Suspect]
     Indication: STILL'S DISEASE ADULT ONSET
     Dosage: 1 G, /D, IV DRIP
     Route: 041
     Dates: start: 20090129, end: 20090131
  4. PREDNISOLONE [Concomitant]
  5. URIEF (SILODOSIN) [Concomitant]
  6. VALACICLOVIR [Concomitant]
  7. PROGRAF [Suspect]
     Indication: STILL'S DISEASE ADULT ONSET
     Dosage: 2 MG, /D
     Dates: start: 20090101, end: 20090101
  8. PROGRAF [Suspect]
     Indication: STILL'S DISEASE ADULT ONSET
     Dosage: 2 MG, /D, ORAL ; 1.5 MG, /D ; 3 MG, /D
     Route: 048
     Dates: start: 20090203, end: 20101104
  9. PROGRAF [Suspect]
     Indication: STILL'S DISEASE ADULT ONSET
     Dosage: 2 MG, /D, ORAL ; 1.5 MG, /D ; 3 MG, /D
     Route: 048
     Dates: start: 20090101
  10. BONALON (ALENDRONATE SODIUM) [Concomitant]
  11. PREDNISOLONE [Suspect]
     Indication: STILL'S DISEASE ADULT ONSET
     Dosage: 60 MG, /D, ORAL
     Route: 048
     Dates: start: 20081226
  12. GANCICLOVIR [Concomitant]
  13. MAGLAX (MAGNESIUM OXIDE) [Concomitant]
  14. METHYCOBAL (MECOBALAMIN) [Concomitant]

REACTIONS (11)
  - OFF LABEL USE [None]
  - PNEUMONIA BACTERIAL [None]
  - ARTHRALGIA [None]
  - SKIN ULCER [None]
  - HERPES VIRUS INFECTION [None]
  - POLYMYOSITIS [None]
  - SERUM FERRITIN INCREASED [None]
  - OESOPHAGEAL CANDIDIASIS [None]
  - CYTOMEGALOVIRUS INFECTION [None]
  - PLATELET COUNT DECREASED [None]
  - NO THERAPEUTIC RESPONSE [None]
